FAERS Safety Report 7089620-6 (Version None)
Quarter: 2010Q4

REPORT INFORMATION
  Report Type: 
  Country: None (occurrence: None)
  Receive Date: 20101108
  Receipt Date: 20101025
  Transmission Date: 20110411
  Serious: Yes (Other)
  Sender: FDA-Public Use
  Company Number: US-ELI_LILLY_AND_COMPANY-US201010006745

PATIENT
  Age: 70 Year
  Sex: Female

DRUGS (1)
  1. ALIMTA [Suspect]
     Indication: OVARIAN CANCER METASTATIC
     Dosage: 500 MG/M2, UNKNOWN
     Route: 042

REACTIONS (2)
  - OFF LABEL USE [None]
  - SMALL INTESTINAL OBSTRUCTION [None]
